FAERS Safety Report 16575073 (Version 1)
Quarter: 2019Q3

REPORT INFORMATION
  Report Type: Spontaneous
  Country: FR (occurrence: FR)
  Receive Date: 20190715
  Receipt Date: 20190715
  Transmission Date: 20191004
  Serious: Yes (Other)
  Sender: FDA-Public Use
  Company Number: PHHY2019FR159776

PATIENT
  Age: 84 Year
  Sex: Male

DRUGS (1)
  1. EXELON [Suspect]
     Active Substance: RIVASTIGMINE TARTRATE
     Indication: DEMENTIA ALZHEIMER^S TYPE
     Dosage: 1 DF, QD (9.5 MG, QD PATCH 10 (CM2))
     Route: 061
     Dates: start: 20160909, end: 20180921

REACTIONS (2)
  - Condition aggravated [Not Recovered/Not Resolved]
  - Product administration interrupted [Recovered/Resolved]

NARRATIVE: CASE EVENT DATE: 2018
